FAERS Safety Report 9959443 (Version 1)
Quarter: 2014Q1

REPORT INFORMATION
  Report Type: Report from Study
  Country: US (occurrence: US)
  Receive Date: 20140305
  Receipt Date: 20140305
  Transmission Date: 20141002
  Serious: No
  Sender: FDA-Public Use
  Company Number: US-ABBVIE-13P-163-1104513-00

PATIENT
  Age: 65 Year
  Sex: Female
  Weight: 97.61 kg

DRUGS (3)
  1. HUMIRA [Suspect]
     Indication: PSORIATIC ARTHROPATHY
     Route: 058
     Dates: start: 2011
  2. HUMIRA [Suspect]
     Indication: PSORIASIS
  3. HYDROCODONE [Concomitant]
     Indication: ARTHRALGIA

REACTIONS (1)
  - Arthralgia [Not Recovered/Not Resolved]
